FAERS Safety Report 9865285 (Version 2)
Quarter: 2014Q1

REPORT INFORMATION
  Report Type: Spontaneous
  Country: US (occurrence: US)
  Receive Date: 20140203
  Receipt Date: 20140203
  Transmission Date: 20141002
  Serious: No
  Sender: FDA-Public Use
  Company Number: US-ALLERGAN-1301359US

PATIENT
  Age: 52 Year
  Sex: Female

DRUGS (3)
  1. RESTASIS [Suspect]
     Indication: DRY EYE
     Dosage: 2 GTT, BID
     Route: 047
     Dates: start: 201210, end: 20130126
  2. OTC SINUS PILL (NOS) [Concomitant]
     Indication: PRODUCT USED FOR UNKNOWN INDICATION
     Dosage: UNK
  3. ALLERGY SHOTS (NOS) [Concomitant]
     Indication: HYPERSENSITIVITY
     Dosage: UNK, Q WEEK

REACTIONS (1)
  - Alopecia [Recovered/Resolved]
